FAERS Safety Report 10089572 (Version 1)
Quarter: 2014Q2

REPORT INFORMATION
  Report Type: Spontaneous
  Country: FR (occurrence: FR)
  Receive Date: 20140421
  Receipt Date: 20140421
  Transmission Date: 20141212
  Serious: Yes (Other)
  Sender: FDA-Public Use
  Company Number: FR-PFIZER INC-2014106357

PATIENT
  Age: 70 Year
  Sex: 0
  Weight: 52 kg

DRUGS (4)
  1. CAMPTO [Suspect]
     Indication: ADENOCARCINOMA OF COLON
     Dosage: 180 MG/M2 ONCE PER CYCLE
     Route: 041
     Dates: start: 20140107
  2. FLUOROURACIL [Suspect]
     Indication: ADENOCARCINOMA OF COLON
     Dosage: 1200 MG/M2 ONCE PER CYCLE
     Route: 041
     Dates: start: 20140107
  3. ZALTRAP [Suspect]
     Indication: ADENOCARCINOMA OF COLON
     Dosage: 4 MG/KG ONCE DAILY
     Route: 041
     Dates: start: 20140107
  4. VALSARTAN [Concomitant]
     Indication: HYPERTENSION
     Dosage: UNK
     Dates: start: 2009

REACTIONS (2)
  - Vena cava thrombosis [Not Recovered/Not Resolved]
  - Pneumonia [Unknown]
